FAERS Safety Report 10041329 (Version 1)
Quarter: 2014Q1

REPORT INFORMATION
  Report Type: Spontaneous
  Country: GB (occurrence: None)
  Receive Date: 20140325
  Receipt Date: 20140325
  Transmission Date: 20141002
  Serious: Yes (Hospitalization)
  Sender: FDA-Public Use
  Company Number: 2014P1002231

PATIENT
  Age: 65 Year
  Sex: Female

DRUGS (3)
  1. NALOXONE\OXYCODONE [Suspect]
     Indication: PAIN
  2. NALOXONE [Suspect]
     Indication: TOXICITY TO VARIOUS AGENTS
     Route: 030
  3. OXYCODONE [Suspect]
     Indication: PAIN

REACTIONS (9)
  - Somnolence [None]
  - Myoclonus [None]
  - Respiratory rate decreased [None]
  - Alanine aminotransferase increased [None]
  - Blood alkaline phosphatase increased [None]
  - Inhibitory drug interaction [None]
  - Toxicity to various agents [None]
  - Coma scale abnormal [None]
  - Miosis [None]
